FAERS Safety Report 17883868 (Version 1)
Quarter: 2020Q2

REPORT INFORMATION
  Report Type: Spontaneous
  Country: US (occurrence: US)
  Receive Date: 20200610
  Receipt Date: 20200610
  Transmission Date: 20200714
  Serious: Yes (Hospitalization)
  Sender: FDA-Public Use
  Company Number: None

PATIENT
  Sex: Female

DRUGS (1)
  1. HUMIRA [Suspect]
     Active Substance: ADALIMUMAB
     Indication: OSTEOARTHRITIS
     Dosage: ?          OTHER DOSE:1 PEN;?
     Route: 058
     Dates: start: 20180208

REACTIONS (9)
  - Muscle tightness [None]
  - Depression [None]
  - Rash [None]
  - Arthralgia [None]
  - Joint stiffness [None]
  - Anxiety [None]
  - Trismus [None]
  - Chest pain [None]
  - Headache [None]
